FAERS Safety Report 5441464-4 (Version None)
Quarter: 2007Q3

REPORT INFORMATION
  Report Type: 
  Country: None (occurrence: None)
  Receive Date: 20070904
  Receipt Date: 20070823
  Transmission Date: 20080115
  Serious: Yes (Disabling)
  Sender: FDA-Public Use
  Company Number: GB-ELI_LILLY_AND_COMPANY-GB200708005453

PATIENT
  Age: 47 Year
  Sex: Female

DRUGS (5)
  1. OLANZAPINE [Suspect]
     Indication: DEPRESSION
     Dosage: 15 MG, UNK
     Route: 048
     Dates: start: 20030101, end: 20070301
  2. ESCITALOPRAM OXALATE [Concomitant]
     Indication: DEPRESSION
     Dosage: 20 MG, UNK
     Route: 048
     Dates: start: 20030101
  3. MIRTAZAPINE [Concomitant]
     Indication: DEPRESSION
     Dosage: 30 MG, UNK
     Route: 048
     Dates: start: 20061101, end: 20070101
  4. PRIADEL [Concomitant]
     Indication: DEPRESSION
     Dosage: 600 MG, UNK
     Route: 048
     Dates: start: 20030101
  5. ZOLPIDEM TARTRATE [Concomitant]
     Indication: SLEEP DISORDER
     Dosage: 10 MG, UNK
     Route: 048

REACTIONS (2)
  - HEPATOMEGALY [None]
  - WEIGHT DECREASED [None]
